FAERS Safety Report 16349654 (Version 1)
Quarter: 2019Q2

REPORT INFORMATION
  Report Type: Report from Study
  Country: GB (occurrence: GB)
  Receive Date: 20190523
  Receipt Date: 20190523
  Transmission Date: 20190711
  Serious: Yes (Other)
  Sender: FDA-Public Use
  Company Number: GB-PFIZER INC-2019210931

PATIENT
  Age: 38 Year
  Sex: Male

DRUGS (2)
  1. COSENTYX [Suspect]
     Active Substance: SECUKINUMAB
     Indication: PSORIASIS
     Dosage: 300 MG, MONTHLY (300 MG, QMO (PREFILLED SYRINGE)
     Route: 058
     Dates: start: 20180806
  2. METHOTREXATE SODIUM. [Suspect]
     Active Substance: METHOTREXATE SODIUM

REACTIONS (5)
  - Decreased immune responsiveness [Unknown]
  - Pain [Unknown]
  - Arthritis [Unknown]
  - Lower respiratory tract infection [Unknown]
  - Product storage error [Unknown]
